FAERS Safety Report 24993255 (Version 2)
Quarter: 2025Q2

REPORT INFORMATION
  Report Type: Report from Study
  Country: US (occurrence: US)
  Receive Date: 20250221
  Receipt Date: 20250402
  Transmission Date: 20250716
  Serious: Yes (Hospitalization, Other)
  Sender: JAZZ
  Company Number: US-JAZZ PHARMACEUTICALS-2024-US-019136

PATIENT
  Age: 2 Year
  Sex: Female
  Weight: 11.338 kg

DRUGS (6)
  1. EPIDIOLEX [Suspect]
     Active Substance: CANNABIDIOL
     Indication: Epilepsy
     Dosage: 4.92 MILLIGRAM/KILOGRAM, BID
     Route: 048
     Dates: start: 20241102
  2. EPIDIOLEX [Suspect]
     Active Substance: CANNABIDIOL
     Dosage: 0.7 MILLILITER, BID
     Route: 048
     Dates: start: 20241102
  3. EPIDIOLEX [Suspect]
     Active Substance: CANNABIDIOL
     Dosage: 12.34 MILLIGRAM/KILOGRAM, BID
     Route: 048
     Dates: start: 20241102
  4. EPIDIOLEX [Suspect]
     Active Substance: CANNABIDIOL
     Dosage: 0.7 MILLILITER, BID
     Route: 048
     Dates: start: 202410
  5. KEPPRA [Concomitant]
     Active Substance: LEVETIRACETAM
     Indication: Product used for unknown indication
  6. SYMPAZAN [Concomitant]
     Active Substance: CLOBAZAM
     Indication: Product used for unknown indication

REACTIONS (12)
  - Hospitalisation [Unknown]
  - Croup infectious [Recovering/Resolving]
  - Seizure [Recovering/Resolving]
  - Cough [Not Recovered/Not Resolved]
  - Weight increased [Recovering/Resolving]
  - Nasopharyngitis [Recovering/Resolving]
  - Respiratory syncytial virus infection [Recovering/Resolving]
  - Ear infection [Recovering/Resolving]
  - Bruxism [Recovering/Resolving]
  - Influenza [Not Recovered/Not Resolved]
  - Adenoidal disorder [Not Recovered/Not Resolved]
  - Off label use [Unknown]

NARRATIVE: CASE EVENT DATE: 20241022
